FAERS Safety Report 13135539 (Version 2)
Quarter: 2017Q1

REPORT INFORMATION
  Report Type: Report from Study
  Country: None (occurrence: GB)
  Receive Date: 20170120
  Receipt Date: 20170324
  Transmission Date: 20170428
  Serious: Yes (Death)
  Sender: FDA-Public Use
  Company Number: GB-ABBVIE-17K-167-1847319-00

PATIENT
  Sex: Male
  Weight: 87.2 kg

DRUGS (1)
  1. HUMIRA [Suspect]
     Active Substance: ADALIMUMAB
     Indication: PSORIASIS
     Route: 058
     Dates: start: 20110310, end: 20150314

REACTIONS (2)
  - Varices oesophageal [Fatal]
  - Cirrhosis alcoholic [Fatal]
